FAERS Safety Report 16693472 (Version 2)
Quarter: 2019Q3

REPORT INFORMATION
  Report Type: Report from Study
  Country: US (occurrence: US)
  Receive Date: 20190812
  Receipt Date: 20190829
  Transmission Date: 20191004
  Serious: Yes (Other)
  Sender: FDA-Public Use
  Company Number: US-TESAROUBC-2019-TSO00851-US

PATIENT
  Age: 71 Year
  Sex: Female

DRUGS (6)
  1. ZEJULA [Suspect]
     Active Substance: NIRAPARIB
     Dosage: 200 MG, QD
     Route: 048
  2. ZEJULA [Suspect]
     Active Substance: NIRAPARIB
     Dosage: 200 MG, WITH FOOD
     Route: 048
     Dates: start: 20190212, end: 201902
  3. ZEJULA [Suspect]
     Active Substance: NIRAPARIB
     Dosage: 100 MG, QD PM
     Route: 048
  4. ZEJULA [Suspect]
     Active Substance: NIRAPARIB
     Indication: OVARIAN CANCER
     Dosage: 100 MG, QPM WITHOUT FOOD
     Route: 048
     Dates: start: 20190101, end: 201902
  5. ZEJULA [Suspect]
     Active Substance: NIRAPARIB
     Dosage: 200 MG, QPM WITHOUT FOOD
  6. ZEJULA [Suspect]
     Active Substance: NIRAPARIB
     Dosage: 100 MG, QPM WITH FOOD.
     Route: 048
     Dates: start: 201902

REACTIONS (8)
  - Full blood count decreased [Unknown]
  - Constipation [Unknown]
  - Dry mouth [Recovering/Resolving]
  - Drug intolerance [Unknown]
  - Anaemia [Not Recovered/Not Resolved]
  - Blood magnesium decreased [Unknown]
  - Fatigue [Recovering/Resolving]
  - Underdose [Unknown]

NARRATIVE: CASE EVENT DATE: 201902
